FAERS Safety Report 24428836 (Version 1)
Quarter: 2024Q4

REPORT INFORMATION
  Report Type: Spontaneous
  Country: US (occurrence: US)
  Receive Date: 20241011
  Receipt Date: 20241011
  Transmission Date: 20250115
  Serious: Yes (Other)
  Sender: AURINIA PHARMACEUTICALS
  Company Number: US-AURINIA PHARMACEUTICALS INC.-AUR-006885

PATIENT
  Sex: Female

DRUGS (2)
  1. LUPKYNIS [Suspect]
     Active Substance: VOCLOSPORIN
     Indication: Lupus nephritis
     Dosage: PRESCRIPTION WE RECEIVED WRITTEN 9/17/24 IS WRITTEN FOR 3 CAPSULES TWICE DAILY.
     Route: 048
     Dates: start: 20240901
  2. CELLCEPT [Concomitant]
     Active Substance: MYCOPHENOLATE MOFETIL
     Indication: Product used for unknown indication

REACTIONS (10)
  - Systemic lupus erythematosus [Unknown]
  - Chronic kidney disease [Unknown]
  - Food allergy [Unknown]
  - Odynophagia [Unknown]
  - Asthenia [Unknown]
  - Nausea [Unknown]
  - Gastritis [Unknown]
  - Pharyngeal swelling [Unknown]
  - Pharyngeal oedema [Unknown]
  - Treatment noncompliance [Unknown]
